FAERS Safety Report 25308119 (Version 3)
Quarter: 2025Q2

REPORT INFORMATION
  Report Type: Report from Study
  Country: US (occurrence: US)
  Receive Date: 20250513
  Receipt Date: 20250618
  Transmission Date: 20250717
  Serious: No
  Sender: CSL BEHRING
  Company Number: US-BEH-2025204371

PATIENT
  Age: 21 Year
  Sex: Female

DRUGS (2)
  1. PRIVIGEN [Suspect]
     Active Substance: HUMAN IMMUNOGLOBULIN G
     Route: 065
     Dates: start: 20250331
  2. PREDNISONE [Concomitant]
     Active Substance: PREDNISONE

REACTIONS (6)
  - Contusion [Unknown]
  - Dizziness [Unknown]
  - Petechiae [Unknown]
  - Tremor [Unknown]
  - Muscle spasms [Unknown]
  - Epistaxis [Unknown]
